FAERS Safety Report 13949322 (Version 1)
Quarter: 2017Q3

REPORT INFORMATION
  Report Type: Spontaneous
  Country: US (occurrence: US)
  Receive Date: 20170908
  Receipt Date: 20170908
  Transmission Date: 20171128
  Serious: No
  Sender: FDA-Public Use
  Company Number: US-GLAXOSMITHKLINE-US2017135982

PATIENT
  Age: 57 Year
  Sex: Male

DRUGS (1)
  1. VOLTAREN [Suspect]
     Active Substance: DICLOFENAC SODIUM
     Indication: SKIN CANCER
     Dosage: UNK
     Dates: start: 20170828, end: 20170830

REACTIONS (3)
  - Off label use [Unknown]
  - Drug effective for unapproved indication [Recovering/Resolving]
  - Drug administered at inappropriate site [Unknown]
